FAERS Safety Report 5721750-0 (Version None)
Quarter: 2008Q2

REPORT INFORMATION
  Report Type: 
  Country: None (occurrence: None)
  Receive Date: 20080429
  Receipt Date: 20080418
  Transmission Date: 20081010
  Serious: Yes (Hospitalization)
  Sender: FDA-Public Use
  Company Number: GB-ROCHE-560146

PATIENT
  Sex: Female
  Weight: 70.7 kg

DRUGS (10)
  1. ORLISTAT [Suspect]
     Indication: OBESITY
     Route: 048
     Dates: start: 20071009, end: 20080307
  2. ESOMEPRAZOLE [Concomitant]
     Indication: UNEVALUABLE EVENT
     Route: 048
  3. LIPITOR [Concomitant]
     Route: 048
  4. BISOPROLOL FUMARATE [Concomitant]
     Route: 048
  5. NICORANDIL [Concomitant]
     Route: 048
  6. FLECAINIDE ACETATE [Concomitant]
     Route: 048
  7. ASPIRIN [Concomitant]
     Route: 048
  8. DILTIAZAM [Concomitant]
     Route: 048
  9. FUROSEMIDE [Concomitant]
     Route: 048
  10. UNSPECIFIED DRUG [Concomitant]
     Indication: PAIN
     Dosage: REPORTED AS PAIN KILLERS.
     Route: 048

REACTIONS (1)
  - ABSCESS INTESTINAL [None]
